FAERS Safety Report 4413737-5 (Version None)
Quarter: 2004Q2

REPORT INFORMATION
  Report Type: 
  Country: None (occurrence: None)
  Receive Date: 20040630
  Receipt Date: 20040301
  Transmission Date: 20050107
  Serious: No
  Sender: FDA-Public Use
  Company Number: 04P-163-0252139-00

PATIENT
  Age: 82 Year
  Sex: Female

DRUGS (11)
  1. HUMIRA [Suspect]
     Indication: RHEUMATOID ARTHRITIS
     Dosage: 40 MG, 1 IN 2 WK, SUBCUTANEOUS; 40 MG, 1 IN 1 WK, SUBCUTANEOUS
     Route: 058
     Dates: start: 20031003, end: 20031201
  2. HUMIRA [Suspect]
     Indication: RHEUMATOID ARTHRITIS
     Dosage: 40 MG, 1 IN 2 WK, SUBCUTANEOUS; 40 MG, 1 IN 1 WK, SUBCUTANEOUS
     Route: 058
     Dates: start: 20031201
  3. LANSOPRAZOLE [Concomitant]
  4. NABUMETONE [Concomitant]
  5. PROVELLA-14 [Concomitant]
  6. METHOTREXATE SODIUM [Concomitant]
  7. ALENDRONATE SODIUM [Concomitant]
  8. CALCIUM WITH VITAMIN D [Concomitant]
  9. OCUVITE [Concomitant]
  10. LEVOTHYROXINE SODIUM [Concomitant]
  11. MULTIVITAMIN [Concomitant]

REACTIONS (5)
  - CYSTITIS [None]
  - FEELING ABNORMAL [None]
  - FUNGAL INFECTION [None]
  - GASTROENTERITIS VIRAL [None]
  - NASOPHARYNGITIS [None]
